FAERS Safety Report 5725563-5 (Version None)
Quarter: 2008Q2

REPORT INFORMATION
  Report Type: 
  Country: None (occurrence: None)
  Receive Date: 20080501
  Receipt Date: 20080421
  Transmission Date: 20081010
  Serious: Yes (Hospitalization)
  Sender: FDA-Public Use
  Company Number: FR-ABBOTT-08P-056-0445775-00

PATIENT
  Sex: Female

DRUGS (9)
  1. FENOFIBRATE [Suspect]
     Indication: HYPERLIPIDAEMIA
     Route: 048
     Dates: end: 20080102
  2. BLOPRESS PLUS [Suspect]
     Indication: HYPERTENSION
     Dosage: 16MG/12.5 MG DAILY
     Route: 048
     Dates: end: 20080102
  3. FLECAINIDE ACETATE [Suspect]
     Indication: ATRIAL FIBRILLATION
     Route: 048
     Dates: end: 20080306
  4. FLECAINIDE ACETATE [Suspect]
     Route: 048
     Dates: end: 20080101
  5. NICARDIPINE HYDROCHLORIDE [Concomitant]
     Indication: DRUG USE FOR UNKNOWN INDICATION
     Dates: start: 20080102
  6. ZOLPIDEM [Concomitant]
     Indication: DRUG USE FOR UNKNOWN INDICATION
  7. ATENOLOL [Concomitant]
     Indication: DRUG USE FOR UNKNOWN INDICATION
  8. GINKGO BILOBA EXTRACT [Concomitant]
     Indication: DRUG USE FOR UNKNOWN INDICATION
     Dates: end: 20080102
  9. NORDAZEPAM [Concomitant]
     Indication: DRUG USE FOR UNKNOWN INDICATION
     Dates: end: 20080102

REACTIONS (18)
  - ASTHENIA [None]
  - BONE MARROW FAILURE [None]
  - ESCHERICHIA URINARY TRACT INFECTION [None]
  - HAEMATOMA [None]
  - HYPERSENSITIVITY [None]
  - HYPOCAPNIA [None]
  - HYPOXIA [None]
  - INTERSTITIAL LUNG DISEASE [None]
  - LUNG DISORDER [None]
  - MICROCYTIC ANAEMIA [None]
  - NEUTROPENIA [None]
  - PANCYTOPENIA [None]
  - PLEURAL EFFUSION [None]
  - PURPURA [None]
  - RALES [None]
  - RENAL FAILURE [None]
  - SPINAL MYELOGRAM ABNORMAL [None]
  - TRANSAMINASES INCREASED [None]
